FAERS Safety Report 6640578-0 (Version None)
Quarter: 2010Q1

REPORT INFORMATION
  Report Type: 
  Country: None (occurrence: None)
  Receive Date: 20100318
  Receipt Date: 20100310
  Transmission Date: 20100710
  Serious: Yes (Hospitalization)
  Sender: FDA-Public Use
  Company Number: GB-MERCK-1003USA01792

PATIENT
  Age: 65 Year
  Sex: Male

DRUGS (10)
  1. DECADRON [Suspect]
     Indication: MULTIPLE MYELOMA
     Route: 048
  2. VINCRISTINE SULFATE [Suspect]
     Indication: MULTIPLE MYELOMA
     Route: 065
  3. DOXORUBICIN [Suspect]
     Indication: MULTIPLE MYELOMA
     Route: 065
  4. CYCLOPHOSPHAMIDE [Suspect]
     Route: 065
  5. THALIDOMIDE [Suspect]
     Route: 065
  6. BORTEZOMIB [Concomitant]
     Route: 065
  7. FLOXACILLIN [Concomitant]
     Indication: SPLINTER
     Route: 048
  8. FLOXACILLIN [Concomitant]
     Indication: CELLULITIS
     Route: 042
  9. PIPERACILLIN SODIUM AND TAZOBACTAM SODIUM [Concomitant]
     Indication: SEPSIS
     Route: 065
  10. GENTAMICIN [Concomitant]
     Indication: SEPSIS
     Route: 065

REACTIONS (14)
  - CELLULITIS [None]
  - DISEASE RECURRENCE [None]
  - GASTROENTERITIS SALMONELLA [None]
  - HEPATITIS [None]
  - MULTIPLE MYELOMA [None]
  - NECROTISING FASCIITIS [None]
  - PATHOLOGICAL FRACTURE [None]
  - PLASMACYTOMA [None]
  - PROTEUS INFECTION [None]
  - PSEUDOMONAS INFECTION [None]
  - SALMONELLOSIS [None]
  - SEPSIS [None]
  - SHOCK [None]
  - STEM CELL TRANSPLANT [None]
